FAERS Safety Report 4567753-3 (Version None)
Quarter: 2005Q1

REPORT INFORMATION
  Report Type: 
  Country: None (occurrence: None)
  Receive Date: 20050127
  Receipt Date: 20050114
  Transmission Date: 20050727
  Serious: Yes (Other)
  Sender: FDA-Public Use
  Company Number: 2005013926

PATIENT
  Age: 30 Year
  Sex: Female

DRUGS (6)
  1. LYRICA [Suspect]
     Indication: ILL-DEFINED DISORDER
     Dosage: ONCE (1800 MG), ORAL
     Route: 048
  2. XANOR SR (ALPRAZOLAM) [Concomitant]
     Indication: ILL-DEFINED DISORDER
     Dosage: ONCE, ORAL
     Route: 048
  3. LAMICTAL [Suspect]
     Indication: ILL-DEFINED DISORDER
     Dosage: ONCE, ORAL
     Route: 048
  4. SOMADRIL (CARISOPRODOL) [Suspect]
     Indication: ILL-DEFINED DISORDER
     Dosage: ONCE, ORAL
  5. TRUXUAL (CHLORPROTHIXENE HYDROCHLORIDE) [Suspect]
     Indication: ILL-DEFINED DISORDER
     Dosage: ONCE, ORAL
     Route: 048
  6. IMOVANE (ZOPICLONE) [Suspect]
     Indication: ILL-DEFINED DISORDER
     Dosage: ONCE, ORAL
     Route: 048

REACTIONS (3)
  - BALANCE DISORDER [None]
  - DIPLOPIA [None]
  - MULTIPLE DRUG OVERDOSE [None]
